FAERS Safety Report 17580384 (Version 3)
Quarter: 2021Q1

REPORT INFORMATION
  Report Type: Report from Study
  Country: US (occurrence: US)
  Receive Date: 20200325
  Receipt Date: 20210311
  Transmission Date: 20210419
  Serious: No
  Sender: FDA-Public Use
  Company Number: NVSC2020US078314

PATIENT
  Sex: Female

DRUGS (1)
  1. COSENTYX [Suspect]
     Active Substance: SECUKINUMAB
     Indication: PRODUCT USED FOR UNKNOWN INDICATION
     Dosage: 300 MG, QMO
     Route: 058

REACTIONS (6)
  - Stomatitis [Unknown]
  - Bone disorder [Unknown]
  - Psoriasis [Unknown]
  - Cheilitis [Unknown]
  - Chronic sinusitis [Unknown]
  - Facial pain [Unknown]
